FAERS Safety Report 20640576 (Version 4)
Quarter: 2022Q4

REPORT INFORMATION
  Report Type: Spontaneous
  Country: US (occurrence: US)
  Receive Date: 20220327
  Receipt Date: 20221208
  Transmission Date: 20230113
  Serious: Yes (Death, Other)
  Sender: FDA-Public Use
  Company Number: US-SA-SAC20220322000179

PATIENT
  Age: 65 Year
  Sex: Female

DRUGS (17)
  1. KEVZARA [Suspect]
     Active Substance: SARILUMAB
     Indication: Rheumatoid arthritis
     Dosage: 200 MG, QOW
     Route: 058
     Dates: start: 202202, end: 202210
  2. PROLIA [Concomitant]
     Active Substance: DENOSUMAB
     Dosage: 1 MG
  3. DULOXETINE [Concomitant]
     Active Substance: DULOXETINE
     Dosage: 25 MG
  4. ESTRACE [Concomitant]
     Active Substance: ESTRADIOL
     Dosage: 25 MG
  5. METHOTREXATE [Concomitant]
     Active Substance: METHOTREXATE
     Dosage: 25 MG/ML
  6. METHOTREXATE [Concomitant]
     Active Substance: METHOTREXATE
     Dosage: 100/4ML
  7. PREDNISONE [Concomitant]
     Active Substance: PREDNISONE
     Dosage: 10 MG
  8. RECLAST [Concomitant]
     Active Substance: ZOLEDRONIC ACID
     Dosage: 25 MG
  9. RESTASIS [Concomitant]
     Active Substance: CYCLOSPORINE
     Dosage: 10 MG
  10. ROPINIROLE HYDROCHLORIDE [Concomitant]
     Active Substance: ROPINIROLE HYDROCHLORIDE
     Dosage: 10 MG
  11. OXYCODONE HYDROCHLORIDE [Concomitant]
     Active Substance: OXYCODONE HYDROCHLORIDE
     Dosage: 200 MG
  12. FLUTICASONE PROPIONATE [Concomitant]
     Active Substance: FLUTICASONE PROPIONATE
     Dosage: 200 MG
  13. GABAPENTIN [Concomitant]
     Active Substance: GABAPENTIN
     Dosage: 200 MG
  14. OMEPRAZOLE [Concomitant]
     Active Substance: OMEPRAZOLE
     Dosage: UNK
  15. RELAMINE [Concomitant]
     Active Substance: .ALPHA.-LIPOIC ACID\.ALPHA.-TOCOPHEROL SUCCINATE, D-\AMINOBENZOIC ACID\CHONDROITIN SULFATE (BOVINE)\
     Dosage: UNK
  16. SOL [Concomitant]
     Dosage: 1 MG
  17. OXYCODONE [Concomitant]
     Active Substance: OXYCODONE
     Dosage: 200MG

REACTIONS (4)
  - Death [Fatal]
  - Illness [Unknown]
  - Surgery [Unknown]
  - Intentional product misuse [Unknown]

NARRATIVE: CASE EVENT DATE: 20220101
